FAERS Safety Report 4882486-1 (Version None)
Quarter: 2005Q4

REPORT INFORMATION
  Report Type: 
  Country: None (occurrence: None)
  Receive Date: 20051201
  Receipt Date: 20050929
  Transmission Date: 20060501
  Serious: No
  Sender: FDA-Public Use
  Company Number: 2005PV002648

PATIENT
  Age: 67 Year
  Sex: Female
  Weight: 98.8842 kg

DRUGS (1)
  1. BYETTA [Suspect]
     Indication: DIABETES MELLITUS
     Dosage: 5 MCG;BID;SC
     Route: 058
     Dates: start: 20050915

REACTIONS (2)
  - NAUSEA [None]
  - WEIGHT DECREASED [None]
